FAERS Safety Report 25941898 (Version 1)
Quarter: 2025Q4

REPORT INFORMATION
  Report Type: Spontaneous
  Country: AU (occurrence: AU)
  Receive Date: 20251020
  Receipt Date: 20251020
  Transmission Date: 20260118
  Serious: Yes (Other)
  Sender: DR REDDYS
  Company Number: None

PATIENT
  Age: 55 Year
  Sex: Female

DRUGS (2)
  1. ONDANSETRON [Suspect]
     Active Substance: ONDANSETRON
     Indication: Product used for unknown indication
     Route: 065
  2. Epoetin Alfa Pre-Filled Syringe [Concomitant]
     Indication: Product used for unknown indication
     Dosage: PRE-FILLED SYRINGE
     Route: 065

REACTIONS (1)
  - Febrile neutropenia [Unknown]
